FAERS Safety Report 19441437 (Version 1)
Quarter: 2021Q2

REPORT INFORMATION
  Report Type: Spontaneous
  Country: US (occurrence: US)
  Receive Date: 20210618
  Receipt Date: 20210618
  Transmission Date: 20210717
  Serious: Yes (Other)
  Sender: FDA-Public Use
  Company Number: None

PATIENT
  Age: 71 Year
  Sex: Female
  Weight: 54 kg

DRUGS (1)
  1. GAMUNEX?C [Suspect]
     Active Substance: HUMAN IMMUNOGLOBULIN G
     Dosage: ?          OTHER FREQUENCY:EVERY 4 WEEKS;?
     Route: 042
     Dates: start: 20210211, end: 20210211

REACTIONS (8)
  - Tremor [None]
  - Back pain [None]
  - Headache [None]
  - Pain [None]
  - Feeling jittery [None]
  - Paraesthesia [None]
  - Hypoaesthesia oral [None]
  - Eye pruritus [None]

NARRATIVE: CASE EVENT DATE: 20210211
